FAERS Safety Report 22915516 (Version 2)
Quarter: 2023Q4

REPORT INFORMATION
  Report Type: Spontaneous
  Country: GB (occurrence: GB)
  Receive Date: 20230907
  Receipt Date: 20231006
  Transmission Date: 20240110
  Serious: Yes (Other)
  Sender: FDA-Public Use
  Company Number: GB-SANDOZ-SDZ2023GB015606

PATIENT
  Age: 68 Year
  Sex: Male

DRUGS (19)
  1. CAPECITABINE [Suspect]
     Active Substance: CAPECITABINE
     Indication: Pancreatic neuroendocrine tumour
     Dosage: 1800 MG IN NACL 0.9 PERCENT 1000 ML IV INFUSION PER CYCLE; 1150 MG BD
     Route: 042
     Dates: start: 2018
  2. EVEROLIMUS [Suspect]
     Active Substance: EVEROLIMUS
     Indication: Pancreatic neuroendocrine tumour
     Dosage: 10 MG, QD
     Route: 065
  3. EVEROLIMUS [Suspect]
     Active Substance: EVEROLIMUS
     Dosage: 5 MG, QD  (SEP- OCT) (REDUCED)
     Route: 065
     Dates: start: 2017
  4. EVEROLIMUS [Suspect]
     Active Substance: EVEROLIMUS
     Dosage: 10 MG, QD (SEP- OCT)
     Route: 065
     Dates: start: 2017
  5. SUNITINIB [Suspect]
     Active Substance: SUNITINIB
     Indication: Pancreatic neuroendocrine tumour
     Dosage: 37.5 MG, QD (MAR-APR)
     Route: 065
     Dates: start: 2018
  6. SUNITINIB [Suspect]
     Active Substance: SUNITINIB
     Dosage: 37.5 MG, QD  (MAY-DEC)
     Route: 065
     Dates: start: 2018
  7. LANREOTIDE [Suspect]
     Active Substance: LANREOTIDE
     Indication: Pancreatic neuroendocrine tumour
     Dosage: 120 MG, Q4W (AUTOGEL) (MAR-APR)
     Route: 065
     Dates: start: 2018
  8. LANREOTIDE [Suspect]
     Active Substance: LANREOTIDE
     Dosage: 120 MG, Q4W (AUTOGEL) (JAN - APR) (DOSE INCREASED)
     Route: 065
     Dates: start: 2018
  9. LANREOTIDE [Suspect]
     Active Substance: LANREOTIDE
     Dosage: 60 MG, Q4W, (BETWEEN 2008 AND 2016)
     Route: 065
     Dates: start: 2008
  10. LANREOTIDE [Suspect]
     Active Substance: LANREOTIDE
     Dosage: 120 MG, Q4W (AUTOGEL) (SEP-OCT)
     Route: 065
     Dates: start: 2017
  11. LANREOTIDE [Suspect]
     Active Substance: LANREOTIDE
     Dosage: 120 MG, Q4W (AUTOGEL) (MAY-DEC)
     Route: 065
     Dates: start: 2018
  12. STREPTOZOCIN [Suspect]
     Active Substance: STREPTOZOCIN
     Indication: Pancreatic neuroendocrine tumour
     Dosage: STREPTOZOCIN + CAPECITABINE:1800 MG IN NACL 0.9 PERCENT 1000 ML IV INFUSION PER CYCLE; 1150 MG BD
     Route: 042
     Dates: start: 2018
  13. LUTATHERA [Suspect]
     Active Substance: LUTETIUM OXODOTREOTIDE LU-177
     Indication: Pancreatic neuroendocrine tumour
     Dosage: UNK
     Route: 065
     Dates: start: 201905
  14. LUTATHERA [Suspect]
     Active Substance: LUTETIUM OXODOTREOTIDE LU-177
     Dosage: 7.7 GBQ
     Route: 065
     Dates: start: 201909
  15. LUTATHERA [Suspect]
     Active Substance: LUTETIUM OXODOTREOTIDE LU-177
     Dosage: 7.7 GBQ
     Route: 065
     Dates: start: 201907
  16. BISOPROLOL [Concomitant]
     Active Substance: BISOPROLOL\BISOPROLOL FUMARATE
     Indication: Atrial fibrillation
     Route: 065
  17. EDOXABAN [Concomitant]
     Active Substance: EDOXABAN
     Indication: Atrial fibrillation
     Route: 065
  18. LANSOPRAZOLE [Concomitant]
     Active Substance: LANSOPRAZOLE
     Indication: Pancreatic neuroendocrine tumour
     Dosage: UNK
     Route: 065
  19. SODIUM CHLORIDE [Concomitant]
     Active Substance: SODIUM CHLORIDE
     Indication: Product used for unknown indication
     Dosage: 1000 ML (1150 MG BD)
     Route: 042

REACTIONS (18)
  - Hypoglycaemia [Recovered/Resolved]
  - Sepsis [Unknown]
  - Tumour necrosis [Unknown]
  - Malignant neoplasm progression [Unknown]
  - Pancreatic neuroendocrine tumour [Unknown]
  - Liver disorder [Unknown]
  - Disease progression [Recovering/Resolving]
  - Dry eye [Unknown]
  - Dry mouth [Unknown]
  - Stomatitis [Unknown]
  - Palmar-plantar erythrodysaesthesia syndrome [Unknown]
  - Lacrimation increased [Unknown]
  - Fatigue [Unknown]
  - Mouth ulceration [Unknown]
  - Hypoglycaemia [Recovered/Resolved]
  - Hypoglycaemia [Recovered/Resolved]
  - Drug ineffective [Unknown]
  - Product use in unapproved indication [Unknown]

NARRATIVE: CASE EVENT DATE: 20160101
